FAERS Safety Report 19402747 (Version 1)
Quarter: 2021Q2

REPORT INFORMATION
  Report Type: Report from Study
  Country: US (occurrence: US)
  Receive Date: 20210610
  Receipt Date: 20210610
  Transmission Date: 20210717
  Serious: Yes (Other)
  Sender: FDA-Public Use
  Company Number: US-PFIZER INC-2017324732

PATIENT
  Age: 54 Year
  Sex: Female

DRUGS (4)
  1. IBRANCE [Suspect]
     Active Substance: PALBOCICLIB
     Dosage: 100 MG, CYCLIC(100MG DAILY FOR 21 DAYS OF 28?DAY CYCLE) (1 WEEK ON, 1 WEEK OFF)
     Route: 048
     Dates: start: 20190822, end: 20191229
  2. IBRANCE [Suspect]
     Active Substance: PALBOCICLIB
     Indication: BREAST CANCER FEMALE
     Dosage: 100 MG, DAILY
     Route: 048
     Dates: start: 20161201
  3. IBRANCE [Suspect]
     Active Substance: PALBOCICLIB
     Dosage: 100 MG, CYCLIC(100MG DAILY FOR 21 DAYS OF 28?DAY CYCLE) (1 WEEK ON, 1 WEEK OFF)
     Route: 048
     Dates: start: 20200226
  4. IBRANCE [Suspect]
     Active Substance: PALBOCICLIB
     Dosage: 100 MG, CYCLIC(100MG TABLET DAILY BY MOUTH FOR ONE WEEK ON FOLLOWED BY ONE WEEK OFF)
     Route: 048
     Dates: start: 2020

REACTIONS (9)
  - Neutropenia [Unknown]
  - Peripheral swelling [Unknown]
  - Oedema [Unknown]
  - Pain [Recovered/Resolved]
  - Influenza [Unknown]
  - White blood cell count decreased [Recovered/Resolved]
  - Neuropathy peripheral [Unknown]
  - Fatigue [Unknown]
  - Amnesia [Unknown]

NARRATIVE: CASE EVENT DATE: 2019
